FAERS Safety Report 9514661 (Version 1)
Quarter: 2013Q3

REPORT INFORMATION
  Report Type: Spontaneous
  Country: None (occurrence: None)
  Receive Date: 20130906
  Receipt Date: 20130906
  Transmission Date: 20140515
  Serious: Yes (Disabling)
  Sender: FDA-Public Use
  Company Number: 2013/171

PATIENT
  Age: 93 Year
  Sex: Female
  Weight: 53 kg

DRUGS (13)
  1. CEPHALEXIN [Suspect]
     Dates: start: 20130809
  2. ISOSORBIDE MONOTITRATE / ISOSORBIDE 5-MONOTITRATE [Concomitant]
  3. ASPIRIN [Concomitant]
  4. BETAMETHASONE [Concomitant]
  5. BISOPROLOL [Concomitant]
  6. CLOPIDOGREL [Concomitant]
  7. CODEINE PHOSPHATE/PARACETAMOL (CO-CODAMOL) [Concomitant]
  8. ISOPROPYL MYRISTATE/LIQUID PARAFFIN (DOUBLE BASE) [Concomitant]
  9. FRUSEMIDE (FUROSEMIDE) [Concomitant]
  10. LOSARTAN [Concomitant]
  11. OMEPRAZOLE [Concomitant]
  12. SIMVASTATIN [Concomitant]
  13. TRIMETHOPRIM [Concomitant]

REACTIONS (3)
  - Pain [None]
  - Arthralgia [None]
  - Joint stiffness [None]
